FAERS Safety Report 4990861-X (Version None)
Quarter: 2006Q2

REPORT INFORMATION
  Report Type: 
  Country: None (occurrence: None)
  Receive Date: 20060428
  Receipt Date: 20060412
  Transmission Date: 20061013
  Serious: Yes (Hospitalization, Other)
  Sender: FDA-Public Use
  Company Number: US200602004652

PATIENT
  Age: 57 Year
  Sex: Male

DRUGS (4)
  1. HUMALOG [Suspect]
     Indication: DIABETES MELLITUS
     Dates: start: 20030201
  2. HUMULIN N [Suspect]
     Indication: DIABETES MELLITUS
     Dates: start: 20010101
  3. PLAVIX [Concomitant]
  4. IMDUR [Concomitant]

REACTIONS (1)
  - ANGINA UNSTABLE [None]
